FAERS Safety Report 18087566 (Version 1)
Quarter: 2020Q3

REPORT INFORMATION
  Report Type: Spontaneous
  Country: US (occurrence: US)
  Receive Date: 20200729
  Receipt Date: 20200729
  Transmission Date: 20201103
  Serious: Yes (Hospitalization)
  Sender: FDA-Public Use
  Company Number: US-TETRAPHASE PHARMACEUTICALS, INC.-2020TP000014

PATIENT
  Weight: 130 kg

DRUGS (1)
  1. XERAVA [Suspect]
     Active Substance: ERAVACYCLINE DIHYDROCHLORIDE
     Indication: ACINETOBACTER INFECTION

REACTIONS (3)
  - Sepsis [Unknown]
  - Off label use [Not Recovered/Not Resolved]
  - Product prescribing issue [Not Recovered/Not Resolved]
